FAERS Safety Report 21522154 (Version 1)
Quarter: 2022Q4

REPORT INFORMATION
  Report Type: Spontaneous
  Country: PL (occurrence: PL)
  Receive Date: 20221028
  Receipt Date: 20221028
  Transmission Date: 20230113
  Serious: Yes (Other)
  Sender: FDA-Public Use
  Company Number: PL-BIOGEN-2022BI01164529

PATIENT
  Age: 8 Year
  Sex: Male

DRUGS (1)
  1. SPINRAZA [Suspect]
     Active Substance: NUSINERSEN
     Indication: Spinal muscular atrophy
     Dosage: 18TH DOSE
     Route: 050
     Dates: start: 20221014

REACTIONS (6)
  - Partial seizures [Unknown]
  - Hypernatraemia [Unknown]
  - Salivary hypersecretion [Unknown]
  - Pyrexia [Unknown]
  - Headache [Unknown]
  - Lactose intolerance [Unknown]

NARRATIVE: CASE EVENT DATE: 20221015
